FAERS Safety Report 17463306 (Version 1)
Quarter: 2020Q1

REPORT INFORMATION
  Report Type: Spontaneous
  Country: US (occurrence: US)
  Receive Date: 20200213
  Receipt Date: 20200213
  Transmission Date: 20200409
  Serious: Yes (Hospitalization)
  Sender: FDA-Public Use
  Company Number: None

PATIENT
  Age: 72 Year
  Sex: Male
  Weight: 96 kg

DRUGS (1)
  1. EDOXABAN [Suspect]
     Active Substance: EDOXABAN TOSYLATE
     Indication: ATRIAL FIBRILLATION
     Route: 048
     Dates: start: 20190620, end: 20191207

REACTIONS (4)
  - Haemoglobin decreased [None]
  - Gastric haemorrhage [None]
  - Diarrhoea haemorrhagic [None]
  - Haemorrhage [None]

NARRATIVE: CASE EVENT DATE: 20191207
